FAERS Safety Report 7818478-X (Version None)
Quarter: 2011Q4

REPORT INFORMATION
  Report Type: 
  Country: None (occurrence: None)
  Receive Date: 20111017
  Receipt Date: 20101110
  Transmission Date: 20120403
  Serious: No
  Sender: FDA-Public Use
  Company Number: US-BAYER-201041340NA

PATIENT
  Sex: Female
  Weight: 48.073 kg

DRUGS (1)
  1. MAGNEVIST [Suspect]
     Indication: NUCLEAR MAGNETIC RESONANCE IMAGING
     Dosage: 9.5 ML, UNK LEFT HAND
     Dates: start: 20101011, end: 20101011

REACTIONS (1)
  - PRESYNCOPE [None]
